FAERS Safety Report 4976784-0 (Version None)
Quarter: 2006Q2

REPORT INFORMATION
  Report Type: 
  Country: None (occurrence: None)
  Receive Date: 20060412
  Receipt Date: 20060329
  Transmission Date: 20061013
  Serious: Yes (Hospitalization)
  Sender: FDA-Public Use
  Company Number: WAES 0601USA01256

PATIENT
  Age: 72 Year
  Sex: Female

DRUGS (11)
  1. FOSAMAX [Suspect]
     Indication: OSTEOPOROSIS
     Dosage: 5 MG/DAILY, PO
     Route: 048
     Dates: start: 20030903, end: 20040305
  2. CONIEL [Concomitant]
  3. GLAKAY [Concomitant]
  4. JUVELA N [Concomitant]
  5. LASIX [Concomitant]
  6. MUCOSTA [Concomitant]
  7. PRORENAL [Concomitant]
  8. SELBEX [Concomitant]
  9. SYAKUYAKU-KANZOTO [Concomitant]
  10. TAKEPRON [Concomitant]
  11. ALFACALCIDOL [Concomitant]

REACTIONS (2)
  - GAMMA-GLUTAMYLTRANSFERASE INCREASED [None]
  - ROAD TRAFFIC ACCIDENT [None]
